FAERS Safety Report 23281582 (Version 2)
Quarter: 2023Q4

REPORT INFORMATION
  Report Type: Spontaneous
  Country: BR (occurrence: BR)
  Receive Date: 20231211
  Receipt Date: 20231226
  Transmission Date: 20240109
  Serious: Yes (Other)
  Sender: FDA-Public Use
  Company Number: BR-009507513-2312BRA003095

PATIENT
  Age: 58 Year
  Sex: Male

DRUGS (4)
  1. PEMBROLIZUMAB [Suspect]
     Active Substance: PEMBROLIZUMAB
     Indication: Metastatic squamous cell carcinoma
     Dosage: 200 MILLIGRAM, Q3W; 21 CYCLES PERFORMED
  2. FLUOROURACIL [Suspect]
     Active Substance: FLUOROURACIL
     Indication: Metastatic squamous cell carcinoma
     Dosage: EVERY 21 DAYS
  3. CISPLATIN [Suspect]
     Active Substance: CISPLATIN
     Indication: Metastatic squamous cell carcinoma
     Dosage: EVERY 21 DAYS
  4. CISPLATIN [Suspect]
     Active Substance: CISPLATIN
     Dosage: EVERY 21 DAYS; DOSE REDUCED IN THE 3RD CYCLE

REACTIONS (2)
  - Neutropenia [Unknown]
  - Therapy partial responder [Recovered/Resolved]
